APPROVED DRUG PRODUCT: ZOHYDRO ER
Active Ingredient: HYDROCODONE BITARTRATE
Strength: 20MG
Dosage Form/Route: CAPSULE, EXTENDED RELEASE;ORAL
Application: N202880 | Product #003
Applicant: RECRO GAINESVILLE LLC
Approved: Oct 25, 2013 | RLD: Yes | RS: No | Type: DISCN

PATENTS:
Patent 9433619 | Expires: Jul 25, 2033
Patent 9421200 | Expires: Jul 25, 2033
Patent 9486451 | Expires: Sep 12, 2034
Patent 9610286 | Expires: Jul 25, 2033
Patent 9333201 | Expires: Jul 25, 2033
Patent 10028946 | Expires: Jul 25, 2033
Patent 10092559 | Expires: Sep 12, 2034
Patent 9713611 | Expires: Sep 12, 2034
Patent 9339499 | Expires: Jul 25, 2033
Patent 9452163 | Expires: Sep 12, 2034
Patent 10456393 | Expires: Jul 25, 2033
Patent 10722511 | Expires: Jul 25, 2033
Patent 9265760 | Expires: Jul 25, 2033
Patent 10322120 | Expires: Jul 25, 2033
Patent 9132096 | Expires: Sep 12, 2034
Patent 9326982 | Expires: Jul 25, 2033